FAERS Safety Report 8519153-9 (Version None)
Quarter: 2012Q3

REPORT INFORMATION
  Report Type: 
  Country: None (occurrence: None)
  Receive Date: 20120718
  Receipt Date: 20120703
  Transmission Date: 20120928
  Serious: Yes (Life-Threatening)
  Sender: FDA-Public Use
  Company Number: IT-INCYTE CORPORATION-2012IN001291

PATIENT
  Sex: Male
  Weight: 56 kg

DRUGS (5)
  1. INC424 [Suspect]
     Indication: MYELOFIBROSIS
     Dosage: 5 MG, BID
     Dates: start: 20120507
  2. FUROSEMIDE [Suspect]
     Indication: OEDEMA PERIPHERAL
     Dosage: 25 MG, QD
     Route: 048
     Dates: start: 20120602
  3. ALLOPURINOL [Concomitant]
     Dosage: UNK
     Dates: start: 20120317
  4. METHYLPREDNISOLONE [Concomitant]
     Dosage: UNK
     Dates: start: 20120410
  5. PANTOPRAZOLE [Concomitant]
     Dosage: UNK
     Dates: start: 20120316, end: 20120701

REACTIONS (1)
  - HYPERURICAEMIA [None]
